FAERS Safety Report 8619943-8 (Version None)
Quarter: 2012Q3

REPORT INFORMATION
  Report Type: 
  Country: None (occurrence: None)
  Receive Date: 20120824
  Receipt Date: 20120814
  Transmission Date: 20120928
  Serious: Yes (Hospitalization, Other)
  Sender: FDA-Public Use
  Company Number: TW-CELGENEUS-153-21880-12070005

PATIENT
  Sex: Male
  Weight: 57.8 kg

DRUGS (3)
  1. REVLIMID [Suspect]
     Indication: MULTIPLE MYELOMA
     Dosage: 15 MILLIGRAM
     Route: 048
     Dates: start: 20120601, end: 20120621
  2. REVLIMID [Suspect]
     Dosage: 15 MILLIGRAM
     Route: 048
     Dates: start: 20120629
  3. REVLIMID [Suspect]
     Dosage: 15 MILLIGRAM
     Route: 048
     Dates: start: 20120730

REACTIONS (4)
  - HYPONATRAEMIA [None]
  - PYREXIA [None]
  - HYPOKALAEMIA [None]
  - LEUKOPENIA [None]
